FAERS Safety Report 7416021-0 (Version None)
Quarter: 2011Q2

REPORT INFORMATION
  Report Type: 
  Country: None (occurrence: None)
  Receive Date: 20110414
  Receipt Date: 20110408
  Transmission Date: 20111010
  Serious: Yes (Hospitalization)
  Sender: FDA-Public Use
  Company Number: DE-ABBOTT-11P-062-0717836-00

PATIENT
  Age: 28 Year
  Sex: Female

DRUGS (4)
  1. HUMIRA [Suspect]
     Indication: CROHN'S DISEASE
     Dates: start: 20090901, end: 20110324
  2. NEBIVOLOL HCL [Concomitant]
     Indication: PRODUCT USED FOR UNKNOWN INDICATION
  3. NUVARING [Concomitant]
     Indication: CONTRACEPTION
  4. BUDENOFALK [Concomitant]
     Indication: PRODUCT USED FOR UNKNOWN INDICATION
     Dosage: IF REQUIRED FOR 2-3 WEEKS

REACTIONS (11)
  - NAUSEA [None]
  - BURNING SENSATION [None]
  - HYPOAESTHESIA FACIAL [None]
  - DIARRHOEA [None]
  - SENSATION OF HEAVINESS [None]
  - MUSCULAR WEAKNESS [None]
  - HYPOAESTHESIA [None]
  - FISTULA [None]
  - GASTROINTESTINAL NECROSIS [None]
  - PARAESTHESIA [None]
  - PAIN IN EXTREMITY [None]
